FAERS Safety Report 24685423 (Version 1)
Quarter: 2024Q4

REPORT INFORMATION
  Report Type: Spontaneous
  Country: JP (occurrence: JP)
  Receive Date: 20241202
  Receipt Date: 20241202
  Transmission Date: 20250114
  Serious: Yes (Other)
  Sender: ELI LILLY AND COMPANY
  Company Number: JP-Merck Healthcare KGaA-2024055026

PATIENT
  Age: 55 Year
  Sex: Female

DRUGS (3)
  1. ERBITUX [Suspect]
     Active Substance: CETUXIMAB
     Indication: Colon cancer metastatic
     Dosage: 400 MG, 1 EVERY 2 WEEK
     Route: 041
     Dates: start: 20240523
  2. ENCORAFENIB [Suspect]
     Active Substance: ENCORAFENIB
     Indication: Colon cancer metastatic
     Dosage: 300 MG, DAILY
     Route: 048
     Dates: start: 20240523
  3. BINIMETINIB [Suspect]
     Active Substance: BINIMETINIB
     Indication: Colon cancer metastatic
     Dosage: 45 MG, BID
     Route: 048
     Dates: start: 20240523

REACTIONS (1)
  - Serous retinal detachment [Recovering/Resolving]

NARRATIVE: CASE EVENT DATE: 20240523
